FAERS Safety Report 7399168-7 (Version None)
Quarter: 2011Q1

REPORT INFORMATION
  Report Type: 
  Country: None (occurrence: None)
  Receive Date: 20110328
  Receipt Date: 20110314
  Transmission Date: 20110831
  Serious: Yes (Death, Hospitalization)
  Sender: FDA-Public Use
  Company Number: 2011MA002392

PATIENT
  Age: 19 Year
  Sex: Female

DRUGS (6)
  1. LOXAPINE [Concomitant]
  2. RISPERIDONE [Suspect]
     Indication: PSYCHOTIC DISORDER
     Dosage: 3 MG;QD
  3. NORTRIPTYLINE (NORTIPTYLINE) [Suspect]
     Indication: MAJOR DEPRESSION
     Dosage: 100 MG
  4. VENLAFAXINE HCL [Concomitant]
  5. OLANZAPINE [Concomitant]
  6. DIPHENHYDRAMINE HCL [Concomitant]

REACTIONS (17)
  - AMENORRHOEA [None]
  - WEIGHT INCREASED [None]
  - LOSS OF CONSCIOUSNESS [None]
  - HYPOTENSION [None]
  - PULMONARY EMBOLISM [None]
  - THINKING ABNORMAL [None]
  - DIET REFUSAL [None]
  - HYPERPROLACTINAEMIA [None]
  - RESPIRATORY DISORDER [None]
  - PULSE ABSENT [None]
  - SUICIDE ATTEMPT [None]
  - SUICIDAL IDEATION [None]
  - FRUSTRATION [None]
  - FLAT AFFECT [None]
  - MYDRIASIS [None]
  - RESPIRATORY ARREST [None]
  - PSYCHOMOTOR RETARDATION [None]
